FAERS Safety Report 14031971 (Version 2)
Quarter: 2017Q4

REPORT INFORMATION
  Report Type: Report from Study
  Country: JP (occurrence: JP)
  Receive Date: 20171002
  Receipt Date: 20171130
  Transmission Date: 20180321
  Serious: Yes (Death)
  Sender: FDA-Public Use
  Company Number: JP-DSJP-DSJ-2017-114883

PATIENT

DRUGS (7)
  1. BLOPRESS [Concomitant]
     Active Substance: CANDESARTAN CILEXETIL
     Dosage: 8MG/DAY
     Route: 048
     Dates: end: 20160207
  2. LONSURF [Concomitant]
     Active Substance: TIPIRACIL HYDROCHLORIDE\TRIFLURIDINE
     Dosage: 90MG/DAY,5-DAYS ON/ 2-DAYS OFF SCHEDULE, NEXT 2-WEEK REST
     Route: 048
     Dates: start: 20160307, end: 20160423
  3. TS-1 [Concomitant]
     Active Substance: GIMERACIL\OTERACIL\TEGAFUR
     Dosage: 100MG/DAY,2-DAYS ON/1-DAYS OFF
     Route: 048
     Dates: start: 20151202, end: 20160221
  4. EDOXABAN [Suspect]
     Active Substance: EDOXABAN TOSYLATE
     Dosage: 30 MG, QD
     Route: 048
     Dates: start: 20160518, end: 20160705
  5. EDOXABAN [Suspect]
     Active Substance: EDOXABAN TOSYLATE
     Indication: DEEP VEIN THROMBOSIS
     Dosage: 60 MG, QD
     Route: 048
     Dates: start: 20150911, end: 20160517
  6. TRAMCET [Concomitant]
     Active Substance: ACETAMINOPHEN\TRAMADOL
     Dosage: 1DF/DAY
     Route: 048
  7. CAMPTO [Concomitant]
     Active Substance: IRINOTECAN
     Dosage: 180 MG, ONCE EVERY 3 WK
     Route: 042
     Dates: start: 20151202, end: 20160208

REACTIONS (3)
  - Rectal cancer [Fatal]
  - Haemorrhage [Recovering/Resolving]
  - Renal impairment [Not Recovered/Not Resolved]

NARRATIVE: CASE EVENT DATE: 20160517
